FAERS Safety Report 12503242 (Version 1)
Quarter: 2016Q2

REPORT INFORMATION
  Report Type: Spontaneous
  Country: US (occurrence: US)
  Receive Date: 20160628
  Receipt Date: 20160628
  Transmission Date: 20160815
  Serious: No
  Sender: FDA-Public Use
  Company Number: US-FERRINGPH-2015FE03238

PATIENT
  Sex: Female
  Weight: 94.33 kg

DRUGS (1)
  1. BRAVELLE [Suspect]
     Active Substance: FOLLITROPIN\UROFOLLITROPIN
     Indication: OVULATION INDUCTION
     Dosage: SUBQ INTO STOMACH
     Route: 058
     Dates: end: 201501

REACTIONS (1)
  - Drug ineffective [Unknown]
